FAERS Safety Report 25618005 (Version 1)
Quarter: 2025Q3

REPORT INFORMATION
  Report Type: Spontaneous
  Country: US (occurrence: None)
  Receive Date: 20250729
  Receipt Date: 20250729
  Transmission Date: 20251021
  Serious: Yes (Hospitalization)
  Sender: FDA-CTU
  Company Number: None

PATIENT
  Age: 51 Year
  Sex: Female
  Weight: 74.7 kg

DRUGS (4)
  1. ZEPBOUND [Suspect]
     Active Substance: TIRZEPATIDE
     Indication: Weight decreased
     Route: 058
     Dates: start: 20250423, end: 20250721
  2. Losarton [Concomitant]
  3. PANTOPRAZOLE [Concomitant]
     Active Substance: PANTOPRAZOLE
  4. RIZATRIPTAN [Concomitant]
     Active Substance: RIZATRIPTAN

REACTIONS (3)
  - Diarrhoea [None]
  - Renal impairment [None]
  - Dehydration [None]

NARRATIVE: CASE EVENT DATE: 20250722
